FAERS Safety Report 13146890 (Version 4)
Quarter: 2018Q1

REPORT INFORMATION
  Report Type: Report from Study
  Country: US (occurrence: US)
  Receive Date: 20170124
  Receipt Date: 20180105
  Transmission Date: 20180508
  Serious: No
  Sender: FDA-Public Use
  Company Number: US-AMGEN-USASL2016087398

PATIENT
  Age: 81 Year
  Sex: Female
  Weight: 82.99 kg

DRUGS (4)
  1. REPATHA [Suspect]
     Active Substance: EVOLOCUMAB
     Indication: CORONARY ARTERY DISEASE
     Dosage: 140 MG/ML, Q2WK
     Route: 058
     Dates: start: 20160407
  2. REPATHA [Suspect]
     Active Substance: EVOLOCUMAB
     Indication: HYPERLIPIDAEMIA
  3. REPATHA [Suspect]
     Active Substance: EVOLOCUMAB
     Indication: RENAL ARTERY STENT PLACEMENT
  4. REPATHA [Suspect]
     Active Substance: EVOLOCUMAB
     Indication: PERIPHERAL ARTERIAL OCCLUSIVE DISEASE

REACTIONS (8)
  - Injection site pain [Recovered/Resolved]
  - Injection site paraesthesia [Recovered/Resolved]
  - Injection site rash [Recovered/Resolved]
  - Rash [Unknown]
  - Rash pruritic [Unknown]
  - Peripheral swelling [Unknown]
  - Rash erythematous [Unknown]
  - Scab [Unknown]

NARRATIVE: CASE EVENT DATE: 201605
